FAERS Safety Report 24799314 (Version 3)
Quarter: 2025Q2

REPORT INFORMATION
  Report Type: Spontaneous
  Country: PL (occurrence: PL)
  Receive Date: 20250102
  Receipt Date: 20250612
  Transmission Date: 20250716
  Serious: Yes (Hospitalization, Other)
  Sender: CELLTRION
  Company Number: PL-ROCHE-10000002186

PATIENT

DRUGS (2)
  1. BEVACIZUMAB [Suspect]
     Active Substance: BEVACIZUMAB
     Indication: Hepatocellular carcinoma
     Route: 065
     Dates: start: 20230424, end: 20240306
  2. ATEZOLIZUMAB [Suspect]
     Active Substance: ATEZOLIZUMAB
     Indication: Hepatocellular carcinoma
     Route: 065
     Dates: start: 20230424, end: 20240306

REACTIONS (7)
  - Chronic obstructive pulmonary disease [Unknown]
  - Hypotonia [Unknown]
  - Influenza A virus test positive [Unknown]
  - Pneumonia [Unknown]
  - Lower respiratory tract infection [Unknown]
  - General physical health deterioration [Unknown]
  - Intentional product use issue [Unknown]

NARRATIVE: CASE EVENT DATE: 20240130
